FAERS Safety Report 21241285 (Version 3)
Quarter: 2025Q1

REPORT INFORMATION
  Report Type: Spontaneous
  Country: US (occurrence: US)
  Receive Date: 20220823
  Receipt Date: 20250310
  Transmission Date: 20250409
  Serious: No
  Sender: SANOFI AVENTIS
  Company Number: US-SA-SAC20220817000031

PATIENT
  Age: 48 Year
  Sex: Female
  Weight: 62.73 kg

DRUGS (2)
  1. FABRAZYME [Suspect]
     Active Substance: AGALSIDASE BETA
     Indication: Fabry^s disease
     Dosage: 70 MG, QOW
     Route: 042
     Dates: start: 201701
  2. FABRAZYME [Suspect]
     Active Substance: AGALSIDASE BETA
     Dosage: 65 MG, QOW
     Route: 042
     Dates: start: 201701

REACTIONS (6)
  - Weight decreased [Unknown]
  - Fabry^s disease [Unknown]
  - Condition aggravated [Unknown]
  - Inappropriate schedule of product administration [Unknown]
  - Product preparation issue [Unknown]
  - Incorrect dose administered [Unknown]

NARRATIVE: CASE EVENT DATE: 20220101
